FAERS Safety Report 9031294 (Version 2)
Quarter: 2013Q1

REPORT INFORMATION
  Report Type: Spontaneous
  Country: JP (occurrence: JP)
  Receive Date: 20130124
  Receipt Date: 20130129
  Transmission Date: 20140127
  Serious: Yes (Hospitalization, Other)
  Sender: FDA-Public Use
  Company Number: JP-B.I. PHARMACEUTICALS,INC./RIDGEFIELD-2013-BI-01265GD

PATIENT
  Sex: Female

DRUGS (5)
  1. MOBIC [Suspect]
     Dates: start: 2009
  2. BEZAFIBRATE [Concomitant]
     Indication: HYPERCHOLESTEROLAEMIA
     Route: 048
     Dates: start: 2008
  3. ROSUVASTATIN CALCIUM [Concomitant]
     Dates: start: 2009
  4. GLIMEPIRIDE [Concomitant]
     Dates: start: 2009
  5. BUCILLAMINE [Concomitant]
     Dates: start: 2010

REACTIONS (3)
  - Nephrotic syndrome [Unknown]
  - Dyslipidaemia [Unknown]
  - Blood cholesterol increased [Unknown]
